FAERS Safety Report 16527805 (Version 3)
Quarter: 2019Q3

REPORT INFORMATION
  Report Type: Report from Study
  Country: US (occurrence: US)
  Receive Date: 20190703
  Receipt Date: 20190923
  Transmission Date: 20191004
  Serious: Yes (Death, Other)
  Sender: FDA-Public Use
  Company Number: US-BAYER-2018-206026

PATIENT
  Age: 85 Year
  Sex: Female

DRUGS (29)
  1. STIVARGA [Suspect]
     Active Substance: REGORAFENIB
     Indication: GASTROINTESTINAL STROMAL TUMOUR
     Dosage: 80 MG DAILY FOR 21 DAYS AND OFF 7 DAYS
     Route: 048
     Dates: start: 20181022, end: 2018
  2. STIVARGA [Suspect]
     Active Substance: REGORAFENIB
     Indication: GASTROINTESTINAL STROMAL TUMOUR
     Dosage: 80 MG DAILY FOR 21 DAYS AND OFF 7 DAYS
     Route: 048
     Dates: start: 20181220
  3. VERAPAMIL [Concomitant]
     Active Substance: VERAPAMIL HYDROCHLORIDE
  4. SUCRALFATE. [Concomitant]
     Active Substance: SUCRALFATE
  5. VITAMINS NOS [Concomitant]
     Active Substance: VITAMINS
  6. ZOFRAN [Concomitant]
     Active Substance: ONDANSETRON HYDROCHLORIDE
  7. ALBUTEROL [SALBUTAMOL] [Concomitant]
     Active Substance: ALBUTEROL
  8. CYANOCOBALAMIN. [Concomitant]
     Active Substance: CYANOCOBALAMIN
  9. PANTOPRAZOLE [Concomitant]
     Active Substance: PANTOPRAZOLE
  10. TORSEMIDE. [Concomitant]
     Active Substance: TORSEMIDE
  11. STIVARGA [Suspect]
     Active Substance: REGORAFENIB
     Indication: GASTROINTESTINAL STROMAL TUMOUR
     Dosage: 80 MG DAILY FOR 21 DAYS ON AND 7 DAYS OFF
     Route: 048
  12. VALSARTAN. [Concomitant]
     Active Substance: VALSARTAN
  13. METOLAZONE. [Concomitant]
     Active Substance: METOLAZONE
  14. STIVARGA [Suspect]
     Active Substance: REGORAFENIB
     Indication: GASTROINTESTINAL STROMAL TUMOUR
     Dosage: 120 MG DAILY FOR 21 DAYS ON AND 7 DAYS OFF
     Route: 048
  15. SUTENT [Concomitant]
     Active Substance: SUNITINIB MALATE
  16. BENADRYL [Concomitant]
     Active Substance: DIPHENHYDRAMINE HYDROCHLORIDE
  17. CYCLOBENZAPRIN [Concomitant]
     Active Substance: CYCLOBENZAPRINE
  18. STIVARGA [Suspect]
     Active Substance: REGORAFENIB
     Indication: GASTROINTESTINAL STROMAL TUMOUR
     Dosage: 80 MG DAILY FOR 21 DAYS AND OFF 7 DAYS
     Route: 048
     Dates: start: 20181102, end: 2018
  19. ASPIRIN [ACETYLSALICYLIC ACID] [Concomitant]
     Active Substance: ASPIRIN
  20. CALCIUM +VIT D [Concomitant]
     Active Substance: CALCIUM\VITAMIN D
  21. POTASSIUM CHLORIDE. [Concomitant]
     Active Substance: POTASSIUM CHLORIDE
  22. VENTOLIN HFA [Concomitant]
     Active Substance: ALBUTEROL SULFATE
  23. CLODIN [CLONIDINE HYDROCHLORIDE] [Concomitant]
  24. GABAPENTIN. [Concomitant]
     Active Substance: GABAPENTIN
  25. COLACE [Concomitant]
     Active Substance: DOCUSATE SODIUM
  26. CELECOXIB. [Concomitant]
     Active Substance: CELECOXIB
  27. DOXYCYCLINE HYCLATE. [Concomitant]
     Active Substance: DOXYCYCLINE HYCLATE
  28. COZAAR [Concomitant]
     Active Substance: LOSARTAN POTASSIUM
  29. TRAZODONE [Concomitant]
     Active Substance: TRAZODONE HYDROCHLORIDE

REACTIONS (39)
  - Death [Fatal]
  - Gastrointestinal stromal tumour [None]
  - Decreased appetite [Not Recovered/Not Resolved]
  - Nasopharyngitis [Not Recovered/Not Resolved]
  - Gait disturbance [Not Recovered/Not Resolved]
  - Diarrhoea [Not Recovered/Not Resolved]
  - Oral pain [Not Recovered/Not Resolved]
  - Product dose omission [Not Recovered/Not Resolved]
  - Off label use [None]
  - Nausea [Not Recovered/Not Resolved]
  - Abdominal pain upper [None]
  - Skin ulcer [Recovered/Resolved]
  - Pruritus [Not Recovered/Not Resolved]
  - Abdominal pain [Not Recovered/Not Resolved]
  - Neck pain [Not Recovered/Not Resolved]
  - Feeling abnormal [Not Recovered/Not Resolved]
  - Anaemia [Not Recovered/Not Resolved]
  - Fatigue [Not Recovered/Not Resolved]
  - Sinusitis [Not Recovered/Not Resolved]
  - Hypertension [Not Recovered/Not Resolved]
  - Blood pressure increased [Not Recovered/Not Resolved]
  - Blood pressure inadequately controlled [Not Recovered/Not Resolved]
  - Blood pressure inadequately controlled [Not Recovered/Not Resolved]
  - Hyperkeratosis [Not Recovered/Not Resolved]
  - Blood pressure fluctuation [Not Recovered/Not Resolved]
  - Blood pressure increased [Recovered/Resolved]
  - Alopecia [Not Recovered/Not Resolved]
  - Weight decreased [Not Recovered/Not Resolved]
  - Skin exfoliation [Not Recovered/Not Resolved]
  - Asthenia [Not Recovered/Not Resolved]
  - Hypertensive emergency [Not Recovered/Not Resolved]
  - Dysphonia [Not Recovered/Not Resolved]
  - Dysphonia [Not Recovered/Not Resolved]
  - Alopecia [Not Recovered/Not Resolved]
  - Product dose omission [None]
  - Muscle spasms [Not Recovered/Not Resolved]
  - Spondylitis [Not Recovered/Not Resolved]
  - Dermatitis [Not Recovered/Not Resolved]
  - Decreased appetite [Not Recovered/Not Resolved]

NARRATIVE: CASE EVENT DATE: 2018
